FAERS Safety Report 14157157 (Version 1)
Quarter: 2017Q4

REPORT INFORMATION
  Report Type: Spontaneous
  Country: CN (occurrence: CN)
  Receive Date: 20171103
  Receipt Date: 20171103
  Transmission Date: 20180321
  Serious: Yes (Other)
  Sender: FDA-Public Use
  Company Number: CN-PFIZER INC-2017470304

PATIENT
  Age: 24 Year
  Sex: Female
  Weight: 55 kg

DRUGS (2)
  1. VFEND [Suspect]
     Active Substance: VORICONAZOLE
     Indication: ANTIFUNGAL TREATMENT
     Dosage: 200 MG, 2X/DAY
     Route: 041
     Dates: start: 20170911, end: 20170916
  2. CYCLOSPORINE. [Interacting]
     Active Substance: CYCLOSPORINE
     Indication: APLASTIC ANAEMIA
     Dosage: 150 MG, 2X/DAY
     Route: 048
     Dates: start: 20170826, end: 20170912

REACTIONS (9)
  - Immunosuppressant drug level increased [Recovering/Resolving]
  - Hallucination, auditory [Recovering/Resolving]
  - Somnolence [Recovering/Resolving]
  - Mental disorder [Recovering/Resolving]
  - Sensory disturbance [Recovering/Resolving]
  - Drug interaction [Recovering/Resolving]
  - Altered state of consciousness [Recovering/Resolving]
  - Hallucination [Recovering/Resolving]
  - Tremor [Recovering/Resolving]

NARRATIVE: CASE EVENT DATE: 20170911
